FAERS Safety Report 8498502 (Version 2)
Quarter: 2013Q2

REPORT INFORMATION
  Report Type: Spontaneous
  Country: BR (occurrence: BR)
  Receive Date: 20120406
  Receipt Date: 20130429
  Transmission Date: 20140414
  Serious: Yes (Life-Threatening, Hospitalization, Disabling)
  Sender: FDA-Public Use
  Company Number: BR-ASTRAZENECA-2012SE21823

PATIENT
  Age: 65 Year
  Sex: Male
  Weight: 98 kg

DRUGS (7)
  1. CRESTOR [Suspect]
     Indication: BLOOD CHOLESTEROL INCREASED
     Route: 048
  2. CRESTOR [Suspect]
     Indication: BLOOD TRIGLYCERIDES INCREASED
     Route: 048
  3. CRESTOR [Suspect]
     Indication: BLOOD CHOLESTEROL INCREASED
     Route: 048
  4. CRESTOR [Suspect]
     Indication: BLOOD TRIGLYCERIDES INCREASED
     Route: 048
  5. DIOVAN [Concomitant]
     Route: 048
  6. SOMALGIN CARDIO [Concomitant]
     Route: 048
  7. DAFLON [Concomitant]
     Route: 048

REACTIONS (9)
  - Cardiac arrest [Recovered/Resolved]
  - Pulmonary embolism [Recovered/Resolved]
  - Myocardial infarction [Recovered/Resolved]
  - Neurocysticercosis [Recovered/Resolved with Sequelae]
  - Thrombosis [Unknown]
  - Local swelling [Recovered/Resolved]
  - Musculoskeletal disorder [Unknown]
  - Swelling face [Recovered/Resolved]
  - Inappropriate schedule of drug administration [Recovered/Resolved]
